FAERS Safety Report 10792998 (Version 2)
Quarter: 2015Q1

REPORT INFORMATION
  Report Type: Report from Study
  Country: GB (occurrence: GB)
  Receive Date: 20150213
  Receipt Date: 20150323
  Transmission Date: 20150721
  Serious: Yes (Hospitalization)
  Sender: FDA-Public Use
  Company Number: GB-ASTELLAS-2015US003999

PATIENT
  Age: 12 Year
  Sex: Female
  Weight: 35 kg

DRUGS (5)
  1. HYDROCORTISONE. [Concomitant]
     Active Substance: HYDROCORTISONE
     Indication: ECZEMA
     Dosage: UNK BID
     Route: 061
     Dates: start: 20111025
  2. CLENIL MODULITE [Concomitant]
     Active Substance: BECLOMETHASONE DIPROPIONATE
     Indication: ASTHMA
     Dosage: 100 MG,BD
     Route: 055
     Dates: start: 20140107
  3. TACROLIMUS. [Suspect]
     Active Substance: TACROLIMUS
     Indication: DERMATITIS ATOPIC
     Dosage: 0.1 %, TWICE DAILY
     Route: 061
     Dates: start: 20070403
  4. TACROLIMUS. [Suspect]
     Active Substance: TACROLIMUS
     Dosage: 0.1 %, ONCE A DAY TWICE WEEKLY
     Route: 061
     Dates: start: 20070403
  5. EPADERM [Concomitant]
     Indication: ECZEMA
     Dosage: UNK UNK, QD
     Route: 061
     Dates: start: 20111025

REACTIONS (2)
  - Asthma [Recovered/Resolved]
  - Product use issue [Unknown]

NARRATIVE: CASE EVENT DATE: 20141211
